FAERS Safety Report 8097697-4 (Version None)
Quarter: 2012Q1

REPORT INFORMATION
  Report Type: 
  Country: None (occurrence: None)
  Receive Date: 20120128
  Receipt Date: 20110714
  Transmission Date: 20120608
  Serious: No
  Sender: FDA-Public Use
  Company Number: US-ABBOTT-11P-163-0838941-00

PATIENT
  Age: 48 Year
  Sex: Male

DRUGS (8)
  1. CARVEDILOL [Concomitant]
     Indication: PRODUCT USED FOR UNKNOWN INDICATION
  2. FLUVOXAMINE MALEATE [Concomitant]
     Indication: DEPRESSION
     Dosage: 2 TABLETS BEFORE BED
  3. HYDROCODONE BITARTRATE [Concomitant]
     Indication: PAIN
     Dosage: 0.5-1 TABLETS AS NEEDED
  4. HUMIRA [Suspect]
     Indication: ANKYLOSING SPONDYLITIS
     Dates: start: 20080101
  5. LISINOPRIL [Concomitant]
     Indication: HYPERTENSION
     Dosage: DAILY
  6. RISPERIDONE [Concomitant]
     Indication: SCHIZOPHRENIA
  7. BENZTROPINE MESYLATE [Concomitant]
     Indication: PRODUCT USED FOR UNKNOWN INDICATION
  8. NIACIN [Concomitant]
     Indication: PRODUCT USED FOR UNKNOWN INDICATION

REACTIONS (3)
  - VOMITING [None]
  - RHINORRHOEA [None]
  - OCULAR HYPERAEMIA [None]
